FAERS Safety Report 11218700 (Version 1)
Quarter: 2015Q2

REPORT INFORMATION
  Report Type: Report from Study
  Country: HU (occurrence: HU)
  Receive Date: 20150625
  Receipt Date: 20150625
  Transmission Date: 20150821
  Serious: Yes (Other)
  Sender: FDA-Public Use
  Company Number: HU-BAYER-2015-129437

PATIENT
  Age: 77 Year
  Sex: Male
  Weight: 85 kg

DRUGS (2)
  1. STIVARGA [Suspect]
     Active Substance: REGORAFENIB
     Indication: COLORECTAL CANCER METASTATIC
     Dosage: 40 MG, QID
     Route: 048
     Dates: start: 20150408
  2. STIVARGA [Suspect]
     Active Substance: REGORAFENIB
     Indication: COLORECTAL CANCER METASTATIC
     Dosage: 40 MG, TID
     Route: 048
     Dates: end: 2015

REACTIONS (17)
  - Colorectal cancer metastatic [Not Recovered/Not Resolved]
  - Aphonia [Recovered/Resolved]
  - Arthropathy [Recovered/Resolved]
  - Haemorrhage subcutaneous [None]
  - Speech disorder [Recovered/Resolved]
  - Hypoacusis [None]
  - Dysphonia [Not Recovered/Not Resolved]
  - Asthenia [None]
  - Dyspnoea exertional [None]
  - Peripheral swelling [None]
  - Platelet count decreased [None]
  - Constipation [Recovered/Resolved]
  - Weight decreased [None]
  - Decreased appetite [Not Recovered/Not Resolved]
  - Ear discomfort [None]
  - Hyperaesthesia [None]
  - Fatigue [None]

NARRATIVE: CASE EVENT DATE: 20150411
